FAERS Safety Report 7552816-0 (Version None)
Quarter: 2011Q2

REPORT INFORMATION
  Report Type: 
  Country: None (occurrence: None)
  Receive Date: 20110616
  Receipt Date: 20110610
  Transmission Date: 20111010
  Serious: Yes (Death, Hospitalization, Other)
  Sender: FDA-Public Use
  Company Number: CA-PFIZER INC-2009248841

PATIENT
  Age: 62 Year
  Sex: Female
  Weight: 77.098 kg

DRUGS (5)
  1. METOPROLOL [Concomitant]
     Dosage: 100 MG, 2X/DAY
     Route: 048
     Dates: start: 20070101
  2. NOVO-LORAZEM [Concomitant]
     Dosage: 1 MG, 2X/DAY
     Route: 048
     Dates: start: 20090428
  3. PREVACID [Concomitant]
     Dosage: 30 MG, 1X/DAY
  4. CELEBREX [Suspect]
     Indication: ARTHRITIS
     Dosage: 200 MG, 2X/DAY
     Route: 048
     Dates: start: 20081212, end: 20090428
  5. MICRO-K [Concomitant]
     Dosage: 16 MEQ (2 X 8MEQ CAPSULES), 3X/DAY

REACTIONS (8)
  - INTESTINAL FUNCTIONAL DISORDER [None]
  - RENAL FAILURE ACUTE [None]
  - HEPATIC FAILURE [None]
  - DEATH [None]
  - FALL [None]
  - HAEMORRHAGE [None]
  - CARDIAC DISORDER [None]
  - BLOOD DISORDER [None]
